FAERS Safety Report 13864655 (Version 1)
Quarter: 2017Q3

REPORT INFORMATION
  Report Type: Spontaneous
  Country: US (occurrence: US)
  Receive Date: 20170813
  Receipt Date: 20170813
  Transmission Date: 20171127
  Serious: Yes (Other)
  Sender: FDA-Public Use
  Company Number: None

PATIENT
  Sex: Female
  Weight: 126 kg

DRUGS (2)
  1. LEVOTHYROXINE SODIUM TABLETS, USP 88MCG (0.088MG) NDC 0781-5183-92 [Suspect]
     Active Substance: LEVOTHYROXINE SODIUM
     Indication: HYPOTHYROIDISM
     Dosage: ?          QUANTITY:90 TABLET(S);?
     Route: 048
     Dates: start: 20160607, end: 20170813
  2. WELLBUTRIN [Concomitant]
     Active Substance: BUPROPION HYDROCHLORIDE

REACTIONS (6)
  - Product solubility abnormal [None]
  - Hypothyroidism [None]
  - Hair texture abnormal [None]
  - Depression [None]
  - Dry skin [None]
  - Dysphonia [None]

NARRATIVE: CASE EVENT DATE: 20160607
